FAERS Safety Report 5859109-8 (Version None)
Quarter: 2008Q3

REPORT INFORMATION
  Report Type: 
  Country: None (occurrence: None)
  Receive Date: 20080827
  Receipt Date: 20080818
  Transmission Date: 20090109
  Serious: Yes (Other)
  Sender: FDA-Public Use
  Company Number: PHHY2008JP18960

PATIENT
  Age: 71 Year
  Sex: Male

DRUGS (2)
  1. LAMISIL [Suspect]
     Dosage: 125 MG/DAY
     Route: 048
     Dates: start: 20080718, end: 20080719
  2. LAMISIL [Suspect]
     Indication: TINEA PEDIS

REACTIONS (1)
  - GENERALISED OEDEMA [None]
